FAERS Safety Report 21249734 (Version 1)
Quarter: 2022Q3

REPORT INFORMATION
  Report Type: Spontaneous
  Country: US (occurrence: None)
  Receive Date: 20220823
  Receipt Date: 20220823
  Transmission Date: 20221027
  Serious: Yes (Hospitalization)
  Sender: FDA-Public Use
  Company Number: None

PATIENT
  Age: 63 Year
  Sex: Male

DRUGS (1)
  1. CAPECITABINE [Suspect]
     Active Substance: CAPECITABINE
     Dosage: 1300 BID ORAL?
     Route: 048

REACTIONS (6)
  - Abdominal infection [None]
  - Abdominal pain [None]
  - White blood cell count increased [None]
  - Off label use [None]
  - Off label use [None]
  - Product dose omission issue [None]

NARRATIVE: CASE EVENT DATE: 20220823
